FAERS Safety Report 6738579-7 (Version None)
Quarter: 2010Q2

REPORT INFORMATION
  Report Type: 
  Country: None (occurrence: None)
  Receive Date: 20100524
  Receipt Date: 20100517
  Transmission Date: 20101027
  Serious: Yes (Other)
  Sender: FDA-Public Use
  Company Number: CA-PFIZER INC-2010061699

PATIENT
  Age: 51 Year
  Sex: Female

DRUGS (3)
  1. DETROL LA [Suspect]
     Indication: HYPERTONIC BLADDER
     Dosage: 4 MG, 1X/DAY
     Dates: start: 20100401
  2. SYNTHROID [Concomitant]
     Dosage: UNK
  3. VALTREX [Concomitant]
     Dosage: UNK

REACTIONS (1)
  - HYPERTONIC BLADDER [None]
